FAERS Safety Report 22050463 (Version 1)
Quarter: 2023Q1

REPORT INFORMATION
  Report Type: Spontaneous
  Country: US (occurrence: None)
  Receive Date: 20230301
  Receipt Date: 20230301
  Transmission Date: 20230417
  Serious: Yes (Hospitalization, Other)
  Sender: FDA-Public Use
  Company Number: US-ROCHE-3293377

PATIENT
  Age: 65 Year
  Sex: Female

DRUGS (1)
  1. OCREVUS [Suspect]
     Active Substance: OCRELIZUMAB
     Indication: Multiple sclerosis
     Dosage: LAST INFUSION 21/OCT/2022
     Route: 065
     Dates: start: 2019

REACTIONS (8)
  - Pneumocystis jirovecii infection [Unknown]
  - Urinary tract infection [Unknown]
  - B-lymphocyte count decreased [Unknown]
  - Dizziness [Unknown]
  - Tachycardia [Unknown]
  - Cough [Unknown]
  - Lung opacity [Unknown]
  - Dyspnoea [Unknown]
